FAERS Safety Report 8065589-2 (Version None)
Quarter: 2012Q1

REPORT INFORMATION
  Report Type: 
  Country: None (occurrence: None)
  Receive Date: 20120124
  Receipt Date: 20120110
  Transmission Date: 20120608
  Serious: Yes (Other)
  Sender: FDA-Public Use
  Company Number: US-MYLANLABS-2012S1000809

PATIENT
  Age: 69 Year
  Sex: Male
  Weight: 50 kg

DRUGS (15)
  1. DIPHENHYDRAMINE HCL [Concomitant]
     Route: 048
  2. DEXAMETHASONE [Concomitant]
     Dosage: 12MG
     Route: 042
  3. ONDANSETRON [Concomitant]
     Dosage: 24MG
     Route: 042
  4. METOPROLOL [Concomitant]
     Dosage: INTERMITTENTLY ADHERENT
     Route: 065
  5. OXYCODONE HCL [Concomitant]
     Dosage: 5MG AS NEEDED; INTERMITTENTLY ADHERENT
     Route: 065
  6. ASPIRIN [Concomitant]
     Dosage: 81MG DAILY; INTERMITTENTLY ADHERENT
     Route: 065
  7. PANTOPRAZOLE [Concomitant]
     Dosage: 40MG DAILY; INTERMITTENTLY ADHERENT
     Route: 065
  8. ETOPOSIDE [Concomitant]
     Indication: SMALL CELL LUNG CANCER STAGE UNSPECIFIED
     Dosage: 150MG ON DAYS 1-3 OF CYCLE
     Route: 050
  9. ALLOPURINOL [Concomitant]
     Dosage: 300MG DAILY
     Route: 065
  10. RANITIDINE [Concomitant]
     Dosage: 50MG
     Route: 042
  11. CARBOPLATIN [Suspect]
     Indication: SMALL CELL LUNG CANCER STAGE UNSPECIFIED
     Dosage: 370MG INFUSION OVER 30MIN ON DAY 1 OF CYCLE; BASED ON AUC 5
     Route: 050
  12. ONDANSETRON [Concomitant]
     Route: 065
  13. ALLOPURINOL [Concomitant]
     Route: 048
  14. IPRATROPIUM BROMIDE [Concomitant]
     Dosage: 3 TIMES DAILY; INTERMITTENTLY ADHERENT
     Route: 065
  15. DEXAMETHASONE [Concomitant]
     Dosage: PROLONGED TAPERING REGIMEN
     Route: 065

REACTIONS (3)
  - TROPONIN I INCREASED [None]
  - ARRHYTHMIA [None]
  - ATRIAL FLUTTER [None]
